FAERS Safety Report 18651730 (Version 2)
Quarter: 2020Q4

REPORT INFORMATION
  Report Type: Spontaneous
  Country: US (occurrence: US)
  Receive Date: 20201223
  Receipt Date: 20201225
  Transmission Date: 20210114
  Serious: No
  Sender: FDA-Public Use
  Company Number: US-BIOGEN-2020BI00856763

PATIENT
  Sex: Female

DRUGS (1)
  1. TECFIDERA [Suspect]
     Active Substance: DIMETHYL FUMARATE
     Indication: MULTIPLE SCLEROSIS
     Route: 065
     Dates: start: 20130606, end: 20130918

REACTIONS (6)
  - Vomiting [Unknown]
  - Heart rate decreased [Unknown]
  - Nausea [Unknown]
  - Diarrhoea [Unknown]
  - Multiple sclerosis [Unknown]
  - Gastric disorder [Recovered/Resolved]
